FAERS Safety Report 16689869 (Version 1)
Quarter: 2019Q3

REPORT INFORMATION
  Report Type: Spontaneous
  Country: FR (occurrence: FR)
  Receive Date: 20190809
  Receipt Date: 20190809
  Transmission Date: 20191004
  Serious: Yes (Hospitalization)
  Sender: FDA-Public Use
  Company Number: FR-009507513-1908FRA002384

PATIENT
  Age: 64 Year
  Sex: Female
  Weight: 69 kg

DRUGS (9)
  1. BISOPROLOL FUMARATE. [Concomitant]
     Active Substance: BISOPROLOL FUMARATE
     Route: 048
  2. DAPTOMYCIN. [Suspect]
     Active Substance: DAPTOMYCIN
     Indication: PNEUMONIA ASPIRATION
     Route: 041
     Dates: start: 20190516, end: 20190619
  3. FLUDEX [Concomitant]
     Route: 048
  4. PREVISCAN [Concomitant]
     Route: 048
  5. OFLOXACIN. [Concomitant]
     Active Substance: OFLOXACIN
     Route: 041
     Dates: start: 20190516
  6. COVERSYL (PERINDOPRIL ARGININE) [Concomitant]
     Active Substance: PERINDOPRIL ARGININE
     Route: 048
  7. LERCAN [Concomitant]
     Active Substance: LERCANIDIPINE
     Route: 048
  8. CEFEPIME [Concomitant]
     Active Substance: CEFEPIME HYDROCHLORIDE
     Route: 041
     Dates: start: 20190512
  9. CORDARONE [Concomitant]
     Active Substance: AMIODARONE HYDROCHLORIDE
     Route: 048

REACTIONS (1)
  - Interstitial lung disease [Recovered/Resolved]

NARRATIVE: CASE EVENT DATE: 20190617
